FAERS Safety Report 10564126 (Version 2)
Quarter: 2014Q4

REPORT INFORMATION
  Report Type: Spontaneous
  Country: JP (occurrence: JP)
  Receive Date: 20141104
  Receipt Date: 20141104
  Transmission Date: 20150529
  Serious: Yes (Hospitalization)
  Sender: FDA-Public Use
  Company Number: PHHY2014JP136444

PATIENT
  Age: 68 Year
  Sex: Male

DRUGS (5)
  1. ZONISAMIDE. [Suspect]
     Active Substance: ZONISAMIDE
     Dosage: 75 MG, QD
     Route: 048
  2. LEVODOPA+CARBIDOPA [Interacting]
     Active Substance: CARBIDOPA\LEVODOPA
     Dosage: 800 MG, UNK
     Route: 048
  3. PRAMIPEXOLE [Suspect]
     Active Substance: PRAMIPEXOLE
     Dosage: 2 MG, UNK
     Route: 048
  4. LEVODOPA+CARBIDOPA [Interacting]
     Active Substance: CARBIDOPA\LEVODOPA
     Indication: PARKINSON^S DISEASE
     Dosage: 600 MG, QD
     Route: 048
  5. ENTACAPONE. [Suspect]
     Active Substance: ENTACAPONE
     Dosage: 600 MG, QD
     Route: 048

REACTIONS (8)
  - Gait disturbance [Unknown]
  - Condition aggravated [Unknown]
  - Movement disorder [Unknown]
  - Drug interaction [Unknown]
  - Muscle rigidity [Unknown]
  - Pain [Unknown]
  - Drug effect decreased [Recovering/Resolving]
  - Tremor [Unknown]
